FAERS Safety Report 9441195 (Version 1)
Quarter: 2013Q3

REPORT INFORMATION
  Report Type: Spontaneous
  Country: US (occurrence: US)
  Receive Date: 20130805
  Receipt Date: 20130805
  Transmission Date: 20140515
  Serious: No
  Sender: FDA-Public Use
  Company Number: US-B.I. PHARMACEUTICALS,INC./RIDGEFIELD-2013-BI-23056BP

PATIENT
  Sex: Female

DRUGS (3)
  1. SPIRIVA [Suspect]
     Indication: ASTHMA
     Dosage: 18 MCG
     Route: 055
     Dates: start: 2006
  2. LOSARTAN [Concomitant]
     Indication: HYPERTENSION
     Dosage: 12.5 MG
     Route: 048
  3. TRICOR [Concomitant]
     Indication: BLOOD CHOLESTEROL INCREASED
     Route: 048

REACTIONS (3)
  - Off label use [Unknown]
  - Macular degeneration [Not Recovered/Not Resolved]
  - Dyspnoea [Not Recovered/Not Resolved]
